FAERS Safety Report 12783129 (Version 1)
Quarter: 2016Q3

REPORT INFORMATION
  Report Type: Report from Study
  Country: US (occurrence: US)
  Receive Date: 20160927
  Receipt Date: 20160927
  Transmission Date: 20161109
  Serious: Yes (Other)
  Sender: FDA-Public Use
  Company Number: US-BEH-2009020643

PATIENT
  Sex: Female

DRUGS (1)
  1. IVIG LYOPHILIZED [Suspect]
     Active Substance: HUMAN IMMUNOGLOBULIN G
     Indication: IMMUNODEFICIENCY COMMON VARIABLE
     Route: 042
     Dates: start: 2007

REACTIONS (5)
  - Anaphylactic reaction [Recovered/Resolved]
  - Headache [Unknown]
  - Pyrexia [Unknown]
  - Blood pressure increased [Unknown]
  - Chills [Unknown]

NARRATIVE: CASE EVENT DATE: 2007
